FAERS Safety Report 16237655 (Version 2)
Quarter: 2019Q2

REPORT INFORMATION
  Report Type: Spontaneous
  Country: US (occurrence: US)
  Receive Date: 20190425
  Receipt Date: 20190506
  Transmission Date: 20190711
  Serious: Yes (Other)
  Sender: FDA-Public Use
  Company Number: US-PFIZER INC-2019171286

PATIENT
  Age: 79 Year
  Sex: Male

DRUGS (9)
  1. TS-1 [Suspect]
     Active Substance: GIMERACIL\OTERACIL\TEGAFUR
     Indication: CHOLANGIOCARCINOMA
     Dosage: UNK (11 COURSES)
  2. GEMCITABINE HYDROCHLORIDE. [Suspect]
     Active Substance: GEMCITABINE HYDROCHLORIDE
     Dosage: UNK (17 COURSES)
  3. GEMCITABINE HYDROCHLORIDE. [Suspect]
     Active Substance: GEMCITABINE HYDROCHLORIDE
     Indication: METASTASES TO LYMPH NODES
     Dosage: 1000 MG/M2, UNK (ON DAY 1, EVERY 2 WEEKS, 6 COURSES)
  4. GEMCITABINE HYDROCHLORIDE. [Suspect]
     Active Substance: GEMCITABINE HYDROCHLORIDE
     Indication: CHOLANGIOCARCINOMA
     Dosage: UNK (11 COURSES)
  5. CISPLATIN. [Suspect]
     Active Substance: CISPLATIN
     Indication: CHOLANGIOCARCINOMA
     Dosage: UNK (11 COURSES)
  6. TS-1 [Suspect]
     Active Substance: GIMERACIL\OTERACIL\TEGAFUR
     Dosage: UNK (17 COURSES)
  7. TS-1 [Suspect]
     Active Substance: GIMERACIL\OTERACIL\TEGAFUR
     Indication: METASTASES TO LYMPH NODES
     Dosage: 80 MG/M2, UNK (DAYS 1 TO 7, EVERY 2 WEEKS, 6 COURSES)
  8. CISPLATIN. [Suspect]
     Active Substance: CISPLATIN
     Indication: METASTASES TO LYMPH NODES
     Dosage: 25 MG/M2, UNK (ON DAY 1, EVERY 2 WEEKS, 6 COURSES)
  9. CISPLATIN. [Suspect]
     Active Substance: CISPLATIN
     Dosage: UNK (17 COURSES)

REACTIONS (2)
  - Drug ineffective [Unknown]
  - Hepatic function abnormal [Not Recovered/Not Resolved]
